FAERS Safety Report 6846131-8 (Version None)
Quarter: 2010Q3

REPORT INFORMATION
  Report Type: 
  Country: None (occurrence: None)
  Receive Date: 20100715
  Receipt Date: 20100709
  Transmission Date: 20110219
  Serious: Yes (Hospitalization)
  Sender: FDA-Public Use
  Company Number: JP-GENENTECH-299373

PATIENT
  Age: 58 Year
  Sex: Female

DRUGS (7)
  1. RITUXAN [Suspect]
     Indication: B-CELL LYMPHOMA
     Dosage: 250 MG/M2, SINGLE
     Route: 042
     Dates: start: 20090714, end: 20090721
  2. ZEVALIN [Suspect]
     Indication: B-CELL LYMPHOMA
     Dosage: 14.8 MGQ/KG, UNK
     Route: 042
     Dates: start: 20090721
  3. ZEVALIN [Suspect]
     Dosage: 130 MBQ, SINGLE
     Route: 042
     Dates: start: 20090714
  4. POLARAMINE [Concomitant]
     Indication: PREMEDICATION
     Dosage: 2 MG, SINGLE
     Route: 048
     Dates: start: 20090714, end: 20090714
  5. POLARAMINE [Concomitant]
     Dosage: 2 MG, SINGLE
     Route: 048
     Dates: start: 20090721, end: 20090721
  6. LOXONIN [Concomitant]
     Indication: PREMEDICATION
     Dosage: 60 MG, SINGLE
     Route: 048
     Dates: start: 20090714, end: 20090714
  7. LOXONIN [Concomitant]
     Dosage: 60 MG, SINGLE
     Route: 048
     Dates: start: 20090721

REACTIONS (2)
  - LIVER DISORDER [None]
  - PNEUMONIA [None]
